FAERS Safety Report 21425365 (Version 2)
Quarter: 2022Q4

REPORT INFORMATION
  Report Type: Report from Study
  Country: US (occurrence: US)
  Receive Date: 20221008
  Receipt Date: 20221101
  Transmission Date: 20230112
  Serious: Yes (Other)
  Sender: FDA-Public Use
  Company Number: US-ABBVIE-4138795

PATIENT
  Sex: Female

DRUGS (5)
  1. IMBRUVICA [Suspect]
     Active Substance: IBRUTINIB
     Indication: Waldenstrom^s macroglobulinaemia
     Route: 048
  2. IMBRUVICA [Suspect]
     Active Substance: IBRUTINIB
     Indication: Waldenstrom^s macroglobulinaemia
     Route: 048
  3. Pfizer/BioNTech [Concomitant]
     Indication: COVID-19 immunisation
     Dosage: FIRST DOSE, ONE IN ONCE
     Route: 030
     Dates: start: 20210208, end: 20210208
  4. Pfizer/BioNTech [Concomitant]
     Indication: COVID-19 immunisation
     Dosage: SECOND DOSE, ONE IN ONCE
     Route: 030
     Dates: start: 20210228, end: 20210228
  5. Moderna [Concomitant]
     Indication: COVID-19 immunisation
     Dosage: THIRD BOOSTER DOSE, ONE IN ONCE
     Route: 030
     Dates: start: 20220915, end: 20220915

REACTIONS (6)
  - Pulmonary oedema [Unknown]
  - Balance disorder [Unknown]
  - Arthritis [Unknown]
  - Hypothyroidism [Unknown]
  - Blood sodium decreased [Unknown]
  - Blood potassium decreased [Unknown]
